FAERS Safety Report 11810491 (Version 1)
Quarter: 2015Q4

REPORT INFORMATION
  Report Type: Spontaneous
  Country: FR (occurrence: FR)
  Receive Date: 20151208
  Receipt Date: 20151208
  Transmission Date: 20160305
  Serious: Yes (Hospitalization)
  Sender: FDA-Public Use
  Company Number: FR-PFIZER INC-2015418076

PATIENT
  Age: 82 Year
  Sex: Female

DRUGS (9)
  1. ADENURIC [Suspect]
     Active Substance: FEBUXOSTAT
     Dosage: 80 MG, ALTERNATE DAY
     Route: 048
  2. VERAPAMIL HCL [Suspect]
     Active Substance: VERAPAMIL HYDROCHLORIDE
     Dosage: 480 MG, 1X/DAY
     Route: 048
     Dates: start: 20150915
  3. KARDEGIC [Suspect]
     Active Substance: ASPIRIN LYSINE
     Dosage: 75 MG, 1X/DAY (IN THE MORNING)
     Route: 048
  4. VERAPAMIL HCL [Suspect]
     Active Substance: VERAPAMIL HYDROCHLORIDE
     Dosage: 240 MG, 1X/DAY (IN THE MORNING)
     Route: 048
  5. IXPRIM [Suspect]
     Active Substance: ACETAMINOPHEN\TRAMADOL HYDROCHLORIDE
     Dosage: 1 DF IN THE MORNING + 2 DF IN THE EVENING (+ 2 DF IN THE DAY AS NEEDED)
     Route: 048
     Dates: end: 20150928
  6. EUPRESSYL /00631801/ [Suspect]
     Active Substance: URAPIDIL
     Dosage: 30 MG, 2X/DAY (MORNING AND EVENING)
     Route: 048
     Dates: end: 20150928
  7. COTAREG [Suspect]
     Active Substance: HYDROCHLOROTHIAZIDE\VALSARTAN
     Dosage: 1 DF, 1X/DAY (160MG/25MG IN THE MORNING)
     Route: 048
  8. ATARAX [Suspect]
     Active Substance: HYDROXYZINE\HYDROXYZINE HYDROCHLORIDE
     Dosage: 25 MG, 1X/DAY (IN THE EVENING)
     Route: 048
     Dates: start: 201507
  9. TAHOR [Suspect]
     Active Substance: ATORVASTATIN CALCIUM
     Dosage: 10 MG, 1X/DAY (IN THE EVENING)
     Route: 048

REACTIONS (5)
  - Dysarthria [Unknown]
  - Confusional state [Recovered/Resolved]
  - Dizziness [Unknown]
  - Extra dose administered [Unknown]
  - Amnesia [Unknown]

NARRATIVE: CASE EVENT DATE: 20150915
